FAERS Safety Report 5800271-0 (Version None)
Quarter: 2008Q3

REPORT INFORMATION
  Report Type: 
  Country: None (occurrence: None)
  Receive Date: 20080703
  Receipt Date: 20080630
  Transmission Date: 20090109
  Serious: Yes (Other)
  Sender: FDA-Public Use
  Company Number: PHHY2008BR12702

PATIENT
  Sex: Female
  Weight: 77 kg

DRUGS (1)
  1. PARLODEL [Suspect]
     Indication: BLOOD PROLACTIN INCREASED
     Dosage: 5 MG, QD
     Route: 048

REACTIONS (7)
  - DECREASED APPETITE [None]
  - DYSPNOEA [None]
  - EYE DISORDER [None]
  - EYE SWELLING [None]
  - HEADACHE [None]
  - NAUSEA [None]
  - SWELLING FACE [None]
